FAERS Safety Report 21327405 (Version 1)
Quarter: 2022Q3

REPORT INFORMATION
  Report Type: Spontaneous
  Country: IT (occurrence: IT)
  Receive Date: 20220913
  Receipt Date: 20220913
  Transmission Date: 20221027
  Serious: No
  Sender: FDA-Public Use
  Company Number: IT-ALKEM LABORATORIES LIMITED-IT-ALKEM-2022-07278

PATIENT
  Age: 51 Year
  Sex: Male

DRUGS (2)
  1. TOLVAPTAN [Suspect]
     Active Substance: TOLVAPTAN
     Indication: Congenital cystic kidney disease
     Dosage: 120 MILLIGRAM PER DAY (90 MG PLUS 30 MG) FOR MORE THAN 18 MONTHS
     Route: 065
  2. TOLVAPTAN [Suspect]
     Active Substance: TOLVAPTAN
     Dosage: 60 MILLIGRAM PER DAY (45 MG PLUS 15 MG)
     Route: 065

REACTIONS (2)
  - Adverse drug reaction [Unknown]
  - Hepatic enzyme increased [Recovered/Resolved]
